FAERS Safety Report 17771631 (Version 1)
Quarter: 2020Q2

REPORT INFORMATION
  Report Type: Spontaneous
  Country: IE (occurrence: IE)
  Receive Date: 20200512
  Receipt Date: 20200512
  Transmission Date: 20200714
  Serious: Yes (Hospitalization)
  Sender: FDA-Public Use
  Company Number: IE-GLAXOSMITHKLINE-IE2020076143

PATIENT
  Age: 49 Year
  Sex: Female

DRUGS (11)
  1. RELVAR ELLIPTA [Suspect]
     Active Substance: FLUTICASONE FUROATE\VILANTEROL TRIFENATATE
     Indication: ASTHMA
     Dosage: ONE PUFF DAILY
     Route: 055
     Dates: start: 20190723, end: 20200418
  2. ELTROXIN [Concomitant]
     Active Substance: LEVOTHYROXINE
     Indication: PRODUCT USED FOR UNKNOWN INDICATION
     Dosage: INITIALLY 75MCG 1/7, 50MCG 6/7 PER WEEK, REDUCED TO 50MCG DAILY IN 2020
     Route: 065
     Dates: start: 20120712, end: 20200418
  3. ALVESCO [Concomitant]
     Active Substance: CICLESONIDE
     Indication: ASTHMA
     Dosage: ONE PUFF DAILY
     Route: 065
     Dates: start: 20190723, end: 20200418
  4. MOLAXOLE [Concomitant]
     Active Substance: POLYETHYLENE GLYCOL 3350\POTASSIUM CHLORIDE\SODIUM BICARBONATE\SODIUM CHLORIDE
     Indication: CONSTIPATION
     Dosage: 1 SACHET DAILY
     Route: 065
     Dates: start: 20180104, end: 20200418
  5. SPIRIVA [Concomitant]
     Active Substance: TIOTROPIUM BROMIDE MONOHYDRATE
     Indication: ASTHMA
     Dosage: ONE CAPSULE INHALED ONCE DAILY
     Route: 055
     Dates: start: 20190209, end: 20200418
  6. ELTROXIN [Concomitant]
     Active Substance: LEVOTHYROXINE
     Indication: PRODUCT USED FOR UNKNOWN INDICATION
     Dosage: INTIALLY 75MCG 1/7, 50MCG 6/7 PER WEEK, REDUCED TO 50MCG DAILY IN 2020
     Route: 065
  7. BUSPIRONE [Concomitant]
     Active Substance: BUSPIRONE HYDROCHLORIDE
     Indication: PRODUCT USED FOR UNKNOWN INDICATION
     Dosage: ONE TWICE DAILY FOR SEVEN DAYS, THEN INCREASE TO ONE THREE TIMES DAILY
     Route: 065
     Dates: start: 20200316, end: 20200418
  8. MONTELUKAST [Concomitant]
     Active Substance: MONTELUKAST SODIUM
     Indication: ASTHMA
     Dosage: ONE TABLET IN THE EVENING
     Route: 065
     Dates: start: 20190427, end: 20200418
  9. OMEPRAZOLE. [Concomitant]
     Active Substance: OMEPRAZOLE
     Indication: GASTROOESOPHAGEAL REFLUX PROPHYLAXIS
     Dosage: 20MG DAILYFOR GASTRIC PROTECTION
     Route: 065
     Dates: start: 20190101, end: 20200418
  10. HYDROCORTISONE. [Concomitant]
     Active Substance: HYDROCORTISONE
     Indication: ADRENAL INSUFFICIENCY
     Dosage: 20MG AM, 10MG PM
     Route: 065
     Dates: start: 20190601, end: 20200418
  11. VENTOLIN [Concomitant]
     Active Substance: ALBUTEROL SULFATE
     Indication: ASTHMA
     Dosage: ONE OR TWO PUFFS WHEN REQUIRED
     Route: 065
     Dates: start: 20090101, end: 20200418

REACTIONS (1)
  - Atrial tachycardia [Unknown]

NARRATIVE: CASE EVENT DATE: 20200215
